FAERS Safety Report 4898778-6 (Version None)
Quarter: 2006Q1

REPORT INFORMATION
  Report Type: 
  Country: None (occurrence: None)
  Receive Date: 20060202
  Receipt Date: 20060126
  Transmission Date: 20060701
  Serious: Yes (Hospitalization)
  Sender: FDA-Public Use
  Company Number: GB-ABBOTT-06P-167-0323522-00

PATIENT

DRUGS (2)
  1. VALPROATE CHRONO [Suspect]
     Indication: OVERDOSE
     Route: 048
  2. VALPROATE CHRONO [Suspect]
     Indication: EPILEPSY

REACTIONS (2)
  - INTENTIONAL DRUG MISUSE [None]
  - OVERDOSE [None]
